FAERS Safety Report 23509231 (Version 1)
Quarter: 2024Q1

REPORT INFORMATION
  Report Type: Spontaneous
  Country: US (occurrence: None)
  Receive Date: 20240209
  Receipt Date: 20240209
  Transmission Date: 20240410
  Serious: Yes (Death)
  Sender: FDA-Public Use
  Company Number: None

PATIENT
  Age: 62 Year
  Sex: Female

DRUGS (2)
  1. VERZENIO [Suspect]
     Active Substance: ABEMACICLIB
     Indication: Breast cancer metastatic
     Dosage: FREQUENCY : TWICE A DAY;?
     Route: 048
     Dates: start: 20220428, end: 20230722
  2. FULVESTRANT [Concomitant]
     Active Substance: FULVESTRANT
     Dates: start: 20220428, end: 20230722

REACTIONS (2)
  - Pneumonitis [None]
  - Drug ineffective [None]

NARRATIVE: CASE EVENT DATE: 20230721
